FAERS Safety Report 16671413 (Version 3)
Quarter: 2019Q3

REPORT INFORMATION
  Report Type: Report from Study
  Country: None (occurrence: US)
  Receive Date: 20190806
  Receipt Date: 20190824
  Transmission Date: 20191004
  Serious: Yes (Death, Hospitalization)
  Sender: FDA-Public Use
  Company Number: US-ABBVIE-19K-163-2878002-00

PATIENT
  Age: 72 Year
  Sex: Male

DRUGS (1)
  1. VENCLEXTA [Suspect]
     Active Substance: VENETOCLAX
     Indication: ACUTE MYELOID LEUKAEMIA
     Route: 048
     Dates: start: 20190304, end: 2019

REACTIONS (5)
  - Febrile neutropenia [Unknown]
  - Off label use [Unknown]
  - Myelodysplastic syndrome [Unknown]
  - Appendicitis [Fatal]
  - Sepsis [Fatal]

NARRATIVE: CASE EVENT DATE: 2019
